FAERS Safety Report 10891890 (Version 1)
Quarter: 2015Q1

REPORT INFORMATION
  Report Type: Spontaneous
  Country: DE (occurrence: DE)
  Receive Date: 20150306
  Receipt Date: 20150306
  Transmission Date: 20150721
  Serious: Yes (Other)
  Sender: FDA-Public Use
  Company Number: DE-ASTRAZENECA-2015SE19649

PATIENT
  Age: 40 Year
  Sex: Female
  Weight: 72 kg

DRUGS (12)
  1. AMOXYPEN [Concomitant]
     Active Substance: AMOXICILLIN
     Indication: STREPTOCOCCUS TEST POSITIVE
     Route: 048
     Dates: start: 20140711, end: 20140712
  2. SEROQUEL [Suspect]
     Active Substance: QUETIAPINE FUMARATE
     Indication: PSYCHOTIC DISORDER
     Route: 048
     Dates: start: 20131223, end: 20140814
  3. LOPHAKOMP B12 [Concomitant]
  4. DEPYRROL [Concomitant]
     Indication: SELF-MEDICATION
     Route: 048
  5. PARACETAMOL [Concomitant]
     Active Substance: ACETAMINOPHEN
     Indication: PAIN
     Route: 042
  6. TAXOFIT FOLSAURE + METAFOLIN [Concomitant]
     Indication: NERVOUS SYSTEM DISORDER
     Route: 048
     Dates: start: 20131223, end: 20140701
  7. KADEFUNGIN [Concomitant]
     Active Substance: CLOTRIMAZOLE
     Indication: VULVOVAGINAL MYCOTIC INFECTION
     Route: 067
  8. CELESTAN [Concomitant]
     Active Substance: BETAMETHASONE
     Indication: LUNG DISORDER
     Route: 030
  9. VAGIFLOR [Concomitant]
     Indication: VAGINAL DISORDER
     Route: 067
  10. LECITHIN [Concomitant]
     Active Substance: LECITHIN
     Indication: SELF-MEDICATION
  11. AMPICILLIN [Concomitant]
     Active Substance: AMPICILLIN
     Indication: STREPTOCOCCUS TEST POSITIVE
     Route: 042
     Dates: start: 20140707, end: 20140710
  12. DEKRISTOL [Concomitant]
     Active Substance: CHOLECALCIFEROL
     Indication: VITAMIN SUPPLEMENTATION
     Route: 048

REACTIONS (5)
  - Vulvovaginal mycotic infection [Unknown]
  - Gestational diabetes [Recovered/Resolved]
  - Premature baby [Unknown]
  - Exposure during pregnancy [Unknown]
  - HELLP syndrome [Recovered/Resolved]

NARRATIVE: CASE EVENT DATE: 20140814
